FAERS Safety Report 6828775-2 (Version None)
Quarter: 2010Q3

REPORT INFORMATION
  Report Type: 
  Country: None (occurrence: None)
  Receive Date: 20100709
  Receipt Date: 20070220
  Transmission Date: 20110219
  Serious: No
  Sender: FDA-Public Use
  Company Number: US-PFIZER INC-2007014589

PATIENT
  Sex: Female

DRUGS (6)
  1. CHANTIX [Suspect]
     Indication: SMOKING CESSATION THERAPY
     Route: 048
     Dates: start: 20070101
  2. PLAVIX [Interacting]
     Indication: STENT PLACEMENT
  3. ZETIA [Concomitant]
  4. LIPITOR [Concomitant]
  5. TRIAMTERENE AND HYDROCHLOROTHIAZIDE [Concomitant]
  6. COZAAR [Concomitant]

REACTIONS (2)
  - CONTUSION [None]
  - DRUG INTERACTION [None]
